FAERS Safety Report 8087657-1 (Version None)
Quarter: 2012Q1

REPORT INFORMATION
  Report Type: 
  Country: None (occurrence: None)
  Receive Date: 20120128
  Receipt Date: 20110407
  Transmission Date: 20120608
  Serious: No
  Sender: FDA-Public Use
  Company Number: US-ABBOTT-11P-163-0717934-00

PATIENT
  Sex: Female
  Weight: 48.578 kg

DRUGS (6)
  1. ASCAOL [Concomitant]
     Indication: CROHN'S DISEASE
  2. UNKNOWN MEDICATION [Concomitant]
     Indication: HEADACHE
  3. HUMIRA [Suspect]
     Indication: RHEUMATOID ARTHRITIS
  4. NASONEX [Concomitant]
     Indication: PRODUCT USED FOR UNKNOWN INDICATION
  5. HUMIRA [Suspect]
     Indication: CROHN'S DISEASE
     Dates: start: 20100101
  6. UNKNOWN MEDICATION [Concomitant]
     Indication: HYPERTENSION

REACTIONS (7)
  - PAIN [None]
  - PAIN IN EXTREMITY [None]
  - ARTHRALGIA [None]
  - JOINT SWELLING [None]
  - PRURITUS [None]
  - OEDEMA PERIPHERAL [None]
  - CLUMSINESS [None]
